FAERS Safety Report 23391441 (Version 3)
Quarter: 2024Q2

REPORT INFORMATION
  Report Type: Spontaneous
  Country: US (occurrence: US)
  Receive Date: 20240111
  Receipt Date: 20240401
  Transmission Date: 20240715
  Serious: No
  Sender: FDA-Public Use
  Company Number: US-SANDOZ-SDZ2024US002564

PATIENT
  Sex: Male

DRUGS (1)
  1. ALBUTEROL SULFATE [Suspect]
     Active Substance: ALBUTEROL SULFATE
     Indication: Chronic obstructive pulmonary disease
     Dosage: 1-2 PUFFS AS NEEDED, EVERY 4 TO 5 HOURS
     Route: 048

REACTIONS (3)
  - Therapeutic product effect decreased [Unknown]
  - Device delivery system issue [Unknown]
  - Incorrect dose administered [Unknown]
